FAERS Safety Report 9701935 (Version 3)
Quarter: 2013Q4

REPORT INFORMATION
  Report Type: Report from Study
  Country: AU (occurrence: AU)
  Receive Date: 20131121
  Receipt Date: 20131227
  Transmission Date: 20140711
  Serious: Yes (Hospitalization)
  Sender: FDA-Public Use
  Company Number: AU-BRISTOL-MYERS SQUIBB COMPANY-19813807

PATIENT
  Age: 72 Year
  Sex: Female

DRUGS (5)
  1. ORENCIA FOR INJ [Suspect]
     Indication: RHEUMATOID ARTHRITIS
     Dosage: DEC13
     Route: 042
     Dates: start: 20071129
  2. CALTRATE [Concomitant]
  3. VITAMIN D [Concomitant]
  4. METHOTREXATE [Concomitant]
  5. ESTROGEN PATCH [Concomitant]

REACTIONS (1)
  - Spinal column stenosis [Unknown]
